FAERS Safety Report 7048073-4 (Version None)
Quarter: 2010Q4

REPORT INFORMATION
  Report Type: 
  Country: None (occurrence: None)
  Receive Date: 20101015
  Receipt Date: 20101005
  Transmission Date: 20110411
  Serious: Yes (Hospitalization)
  Sender: FDA-Public Use
  Company Number: B0679327A

PATIENT
  Age: 60 Year
  Sex: Female

DRUGS (7)
  1. ERYTHROMYCIN [Suspect]
     Route: 048
     Dates: start: 20100810, end: 20100813
  2. QUETIAPINE [Suspect]
     Dosage: 450MG PER DAY
     Route: 048
     Dates: start: 20100726, end: 20100813
  3. LEVOTHYROXINE [Concomitant]
     Indication: THYROID DISORDER
  4. LITHIUM CARBONATE [Concomitant]
  5. OMEPRAZOLE [Concomitant]
  6. SIMVASTATIN [Concomitant]
  7. ZIMOVANE [Concomitant]
     Indication: INSOMNIA

REACTIONS (5)
  - LETHARGY [None]
  - LOWER RESPIRATORY TRACT INFECTION [None]
  - MALAISE [None]
  - SEDATION [None]
  - SOMNOLENCE [None]
